FAERS Safety Report 4967949-2 (Version None)
Quarter: 2006Q2

REPORT INFORMATION
  Report Type: 
  Country: None (occurrence: None)
  Receive Date: 20060410
  Receipt Date: 20051019
  Transmission Date: 20061013
  Serious: Yes (Hospitalization)
  Sender: FDA-Public Use
  Company Number: US-MERCK-0510USA08358

PATIENT
  Age: 34 Year
  Sex: Male
  Weight: 80 kg

DRUGS (3)
  1. VIOXX [Suspect]
     Indication: ARTHRALGIA
     Route: 048
     Dates: start: 20040501, end: 20040701
  2. LORTAB [Concomitant]
     Indication: BACK PAIN
     Route: 065
  3. ULTRAM [Concomitant]
     Indication: BACK PAIN
     Route: 065

REACTIONS (5)
  - HEART RATE IRREGULAR [None]
  - JOINT INJURY [None]
  - PAIN IN EXTREMITY [None]
  - SURGERY [None]
  - THROMBOSIS [None]
